FAERS Safety Report 24856011 (Version 1)
Quarter: 2025Q1

REPORT INFORMATION
  Report Type: Spontaneous
  Country: US (occurrence: None)
  Receive Date: 20250116
  Receipt Date: 20250116
  Transmission Date: 20250409
  Serious: Yes (Death)
  Sender: FDA-CTU
  Company Number: None

PATIENT
  Age: 73 Year
  Sex: Male
  Weight: 261 kg

DRUGS (16)
  1. MERCAPTOPURINE [Suspect]
     Active Substance: MERCAPTOPURINE
     Indication: Autoimmune hepatitis
     Dosage: FREQUENCY : DAILY;?
     Route: 048
     Dates: start: 2004, end: 20231025
  2. MERCAPTOPURINE [Concomitant]
     Active Substance: MERCAPTOPURINE
  3. POTASSIUM CHLORIDE [Concomitant]
     Active Substance: POTASSIUM CHLORIDE
  4. LISINOPRIL [Concomitant]
     Active Substance: LISINOPRIL
  5. PREDNISONE [Concomitant]
     Active Substance: PREDNISONE
  6. ISOSORBIDE MONONITRATE [Concomitant]
     Active Substance: ISOSORBIDE MONONITRATE
  7. TORSEMIDE [Concomitant]
     Active Substance: TORSEMIDE
  8. atorvastatin clacium [Concomitant]
  9. SMZ/TMP DS 800 [Concomitant]
  10. ELIQUIS [Concomitant]
     Active Substance: APIXABAN
  11. METOPROLOL SUCCINATE [Concomitant]
     Active Substance: METOPROLOL SUCCINATE
  12. OMEPRAZOLE [Concomitant]
     Active Substance: OMEPRAZOLE
  13. HYDROCORTISONE [Concomitant]
     Active Substance: HYDROCORTISONE
  14. GINGER CAPSULES [Concomitant]
  15. VITAMINS [Concomitant]
     Active Substance: VITAMINS
  16. CALCIUM [Concomitant]
     Active Substance: CALCIUM

REACTIONS (4)
  - Toxicity to various agents [None]
  - Hepatotoxicity [None]
  - Hepatic necrosis [None]
  - Bacterial sepsis [None]
